FAERS Safety Report 11154697 (Version 1)
Quarter: 2015Q2

REPORT INFORMATION
  Report Type: Report from Study
  Country: US (occurrence: US)
  Receive Date: 20150602
  Receipt Date: 20150602
  Transmission Date: 20150821
  Serious: Yes (Other)
  Sender: FDA-Public Use
  Company Number: PHEH2015US009998

PATIENT

DRUGS (2)
  1. TOBI PODHALER [Suspect]
     Active Substance: TOBRAMYCIN
     Indication: CYSTIC FIBROSIS
     Dosage: UNK (28 DAY ^OFF^ PORTION OF THE CYCLE)
     Route: 065
  2. TOBI [Suspect]
     Active Substance: TOBRAMYCIN
     Indication: CYSTIC FIBROSIS
     Dosage: UNK (28 DAY ^OFF^ PORTION OF THE CYCLE)
     Route: 065

REACTIONS (4)
  - Attention deficit/hyperactivity disorder [Unknown]
  - Anxiety [Unknown]
  - Depression [Unknown]
  - Asthma [Unknown]
